FAERS Safety Report 16858491 (Version 2)
Quarter: 2019Q4

REPORT INFORMATION
  Report Type: Spontaneous
  Country: US (occurrence: US)
  Receive Date: 20190926
  Receipt Date: 20191009
  Transmission Date: 20200122
  Serious: Yes (Hospitalization)
  Sender: FDA-Public Use
  Company Number: US-TEVA-2019-US-1112306

PATIENT
  Age: 40 Year
  Sex: Male
  Weight: 104.3 kg

DRUGS (1)
  1. CEFALEXIN [Suspect]
     Active Substance: CEPHALEXIN
     Indication: INJURY
     Dosage: 750 MILLIGRAM DAILY; TAKEN THREE TIMES A DAY
     Route: 048

REACTIONS (4)
  - Haemorrhage intracranial [Recovered/Resolved]
  - Gut fermentation syndrome [Recovered/Resolved]
  - Fall [Recovered/Resolved]
  - Dysbiosis [Recovered/Resolved]

NARRATIVE: CASE EVENT DATE: 201101
